FAERS Safety Report 4286167-7 (Version None)
Quarter: 2004Q1

REPORT INFORMATION
  Report Type: 
  Country: None (occurrence: None)
  Receive Date: 20040205
  Receipt Date: 19901128
  Transmission Date: 20041129
  Serious: Yes (Life-Threatening, Hospitalization, Disabling)
  Sender: FDA-Public Use
  Company Number: USA/90/00247/PLO

PATIENT
  Age: 27 Year
  Sex: Female

DRUGS (4)
  1. CARDIZEM [Concomitant]
  2. TENORMIN [Concomitant]
  3. A.A.S. [Concomitant]
  4. PARLODEL [Suspect]
     Indication: GALACTORRHOEA
     Dosage: UNKNOWN
     Route: 048
     Dates: start: 19871020, end: 19871027

REACTIONS (20)
  - AGITATION [None]
  - AMNESIA [None]
  - BRAIN DEATH [None]
  - CARDIAC ARREST [None]
  - CARDIAC STRESS TEST ABNORMAL [None]
  - COGNITIVE DISORDER [None]
  - COMA [None]
  - CORONARY ARTERY ATHEROSCLEROSIS [None]
  - DISORIENTATION [None]
  - HEADACHE [None]
  - HYPOXIC ENCEPHALOPATHY [None]
  - MITRAL VALVE PROLAPSE [None]
  - MYOCARDIAL INFARCTION [None]
  - PERICARDIAL EFFUSION [None]
  - RESPIRATORY FAILURE [None]
  - SUDDEN CARDIAC DEATH [None]
  - URINARY TRACT INFECTION [None]
  - VENTRICULAR DYSFUNCTION [None]
  - VENTRICULAR FIBRILLATION [None]
  - VENTRICULAR TACHYCARDIA [None]
